FAERS Safety Report 16123759 (Version 2)
Quarter: 2019Q2

REPORT INFORMATION
  Report Type: Spontaneous
  Country: JP (occurrence: JP)
  Receive Date: 20190327
  Receipt Date: 20190423
  Transmission Date: 20190711
  Serious: Yes (Hospitalization, Other)
  Sender: FDA-Public Use
  Company Number: JP-MYLANLABS-2019M1027356

PATIENT
  Age: 82 Year
  Sex: Female

DRUGS (1)
  1. ACICLOVIR MYLAN [Suspect]
     Active Substance: ACYCLOVIR
     Indication: HERPES ZOSTER
     Dosage: 3000 MILLIGRAM, QD
     Route: 048

REACTIONS (4)
  - Dysarthria [Recovering/Resolving]
  - Altered state of consciousness [Unknown]
  - Toxic encephalopathy [Unknown]
  - Prescribed underdose [Unknown]
